FAERS Safety Report 16306111 (Version 1)
Quarter: 2019Q2

REPORT INFORMATION
  Report Type: Spontaneous
  Country: US (occurrence: US)
  Receive Date: 20190513
  Receipt Date: 20190513
  Transmission Date: 20190711
  Serious: Yes (Other)
  Sender: FDA-Public Use
  Company Number: US-GLAXOSMITHKLINE-US2019AMR082120

PATIENT
  Age: 41 Year
  Sex: Female

DRUGS (2)
  1. DOXYCLINE [Suspect]
     Active Substance: DOXYCYCLINE
     Indication: GASTRIC INFECTION
     Dosage: UNK
     Dates: start: 20190423, end: 20190430
  2. NUCALA [Suspect]
     Active Substance: MEPOLIZUMAB
     Indication: PRODUCT USED FOR UNKNOWN INDICATION
     Dosage: UNK
     Route: 058
     Dates: start: 20190423

REACTIONS (6)
  - Gastric infection [Unknown]
  - Swelling face [Recovered/Resolved]
  - Dizziness [Unknown]
  - Back pain [Unknown]
  - Eye swelling [Recovered/Resolved]
  - Hypersensitivity [Unknown]

NARRATIVE: CASE EVENT DATE: 20190423
